FAERS Safety Report 7427915-4 (Version None)
Quarter: 2011Q2

REPORT INFORMATION
  Report Type: 
  Country: None (occurrence: None)
  Receive Date: 20110421
  Receipt Date: 20110318
  Transmission Date: 20111010
  Serious: Yes (Other)
  Sender: FDA-Public Use
  Company Number: US-BAYER-200944110NA

PATIENT
  Age: 38 Year
  Sex: Female
  Weight: 62.132 kg

DRUGS (5)
  1. LUTERA-28 [Concomitant]
     Dosage: UNK
     Dates: start: 20090515, end: 20090829
  2. YAZ [Suspect]
     Indication: PRODUCT USED FOR UNKNOWN INDICATION
     Dosage: UNK UNK, QD
     Route: 048
     Dates: start: 20080501, end: 20090601
  3. ADVIL LIQUI-GELS [Concomitant]
  4. YASMIN [Suspect]
     Indication: PRODUCT USED FOR UNKNOWN INDICATION
     Dosage: UNK UNK, QD
     Route: 048
     Dates: start: 20080423, end: 20090601
  5. ASCORBIC ACID [Concomitant]

REACTIONS (2)
  - CHOLECYSTITIS CHRONIC [None]
  - BILIARY DYSKINESIA [None]
